FAERS Safety Report 4545734-3 (Version None)
Quarter: 2005Q1

REPORT INFORMATION
  Report Type: 
  Country: None (occurrence: None)
  Receive Date: 20050103
  Receipt Date: 20041215
  Transmission Date: 20050727
  Serious: Yes (Hospitalization)
  Sender: FDA-Public Use
  Company Number: US_0402101088

PATIENT
  Age: 38 Year
  Sex: Female
  Weight: 67 kg

DRUGS (2)
  1. DULOXETINE HYDROCHLORIDE [Suspect]
     Indication: MAJOR DEPRESSION
     Dosage: 60 MG DAY
     Dates: start: 20040122, end: 20040305
  2. MOTRIN [Concomitant]

REACTIONS (13)
  - ABDOMINAL PAIN LOWER [None]
  - BIOPSY COLON ABNORMAL [None]
  - CONSTIPATION [None]
  - DEHYDRATION [None]
  - ERUCTATION [None]
  - FLATULENCE [None]
  - FLUID RETENTION [None]
  - GASTROINTESTINAL DISORDER [None]
  - GENERAL PHYSICAL HEALTH DETERIORATION [None]
  - HOT FLUSH [None]
  - INTESTINAL OBSTRUCTION [None]
  - UTERINE CANCER [None]
  - VOMITING [None]
